FAERS Safety Report 16489266 (Version 1)
Quarter: 2019Q2

REPORT INFORMATION
  Report Type: Spontaneous
  Country: US (occurrence: US)
  Receive Date: 20190628
  Receipt Date: 20190628
  Transmission Date: 20190711
  Serious: No
  Sender: FDA-Public Use
  Company Number: US-ACCORD-101035

PATIENT
  Age: 57 Year
  Sex: Male
  Weight: 85.28 kg

DRUGS (1)
  1. CLONAZEPAM. [Suspect]
     Active Substance: CLONAZEPAM
     Indication: NERVOUS SYSTEM DISORDER
     Dosage: 2 MG
     Route: 048
     Dates: start: 20181230

REACTIONS (6)
  - Frustration tolerance decreased [Unknown]
  - Product substitution issue [Unknown]
  - Insomnia [Unknown]
  - Drug ineffective [Unknown]
  - Eructation [Unknown]
  - Off label use [Unknown]
